FAERS Safety Report 8472893-2 (Version None)
Quarter: 2012Q2

REPORT INFORMATION
  Report Type: 
  Country: None (occurrence: None)
  Receive Date: 20120627
  Receipt Date: 20120619
  Transmission Date: 20120825
  Serious: Yes (Hospitalization)
  Sender: FDA-Public Use
  Company Number: US-MILLENNIUM PHARMACEUTICALS, INC.-2012-04353

PATIENT
  Age: 1 Year
  Sex: Female
  Weight: 10.2 kg

DRUGS (6)
  1. ETOPOSIDE [Suspect]
     Indication: ACUTE MYELOID LEUKAEMIA
     Dosage: UNK MG/M2, CYCLIC
     Route: 041
     Dates: start: 20120606, end: 20120609
  2. DAUNORUBICIN HYDROCHLORIDE [Suspect]
     Indication: ACUTE MYELOID LEUKAEMIA
     Dosage: UNK MG/M2, CYCLIC
     Route: 041
     Dates: start: 20120606, end: 20120609
  3. SULFAMETHOXAZOLE AND TRIMETHOPRIM [Suspect]
     Indication: PRODUCT USED FOR UNKNOWN INDICATION
  4. VELCADE [Suspect]
     Indication: ACUTE MYELOID LEUKAEMIA
     Dosage: 1.3 MG/M2, CYCLIC
     Route: 040
     Dates: start: 20120606, end: 20120609
  5. CYTARABINE [Suspect]
     Dosage: UNK
     Route: 041
     Dates: start: 20120606, end: 20120610
  6. CYTARABINE [Suspect]
     Indication: ACUTE MYELOID LEUKAEMIA
     Dosage: UNK
     Route: 037
     Dates: start: 20120606

REACTIONS (4)
  - HYPERTENSION [None]
  - HYPOXIA [None]
  - SINUS TACHYCARDIA [None]
  - PYREXIA [None]
